FAERS Safety Report 4724407-8 (Version None)
Quarter: 2005Q3

REPORT INFORMATION
  Report Type: 
  Country: None (occurrence: None)
  Receive Date: 20050721
  Receipt Date: 20050718
  Transmission Date: 20060218
  Serious: Yes (Hospitalization)
  Sender: FDA-Public Use
  Company Number: B0387234A

PATIENT
  Age: 29 Year
  Sex: Male
  Weight: 54.8852 kg

DRUGS (3)
  1. PAROXETINE HCL [Suspect]
     Indication: PARANOIA
     Dosage: PER DAY/ORAL
     Route: 048
     Dates: start: 20040130, end: 20040130
  2. FLUVOXAMINE MALEATE [Suspect]
     Indication: PARANOIA
  3. BROMAZEPAM [Concomitant]

REACTIONS (8)
  - AGGRESSION [None]
  - DIARRHOEA [None]
  - HALLUCINATION, AUDITORY [None]
  - HEADACHE [None]
  - NAUSEA [None]
  - PERSECUTORY DELUSION [None]
  - PERSONALITY DISORDER [None]
  - SCHIZOPHRENIA [None]
